FAERS Safety Report 10453936 (Version 1)
Quarter: 2014Q3

REPORT INFORMATION
  Report Type: Spontaneous
  Country: PL (occurrence: PL)
  Receive Date: 20140915
  Receipt Date: 20140915
  Transmission Date: 20150326
  Serious: Yes (Death, Other)
  Sender: FDA-Public Use
  Company Number: PL-TAKEDA-2014JNJ005303

PATIENT

DRUGS (4)
  1. VELCADE [Suspect]
     Active Substance: BORTEZOMIB
     Dosage: 1.3 MG/M2, QD
     Route: 065
  2. MELPHALAN [Suspect]
     Active Substance: MELPHALAN
     Indication: PLASMA CELL MYELOMA
     Route: 048
  3. PREDNISONE. [Suspect]
     Active Substance: PREDNISONE
     Indication: PLASMA CELL MYELOMA
     Route: 048
  4. VELCADE [Suspect]
     Active Substance: BORTEZOMIB
     Indication: PLASMA CELL MYELOMA
     Dosage: 1.3 MG/M2, UNK
     Route: 065

REACTIONS (18)
  - Arrhythmia supraventricular [Fatal]
  - Pancytopenia [Fatal]
  - Polyneuropathy [Unknown]
  - Sepsis [Unknown]
  - Cardiac failure [Fatal]
  - Scleroderma [Unknown]
  - Diarrhoea [Unknown]
  - Bronchitis [Unknown]
  - Neutropenia [Unknown]
  - Pneumonia [Unknown]
  - Pulmonary oedema [Fatal]
  - Fungal infection [Unknown]
  - Infection [Unknown]
  - Thrombocytopenia [Unknown]
  - Upper respiratory tract infection [Unknown]
  - Anaemia [Unknown]
  - Embolism arterial [Fatal]
  - Plasma cell myeloma [Fatal]
